FAERS Safety Report 23771735 (Version 5)
Quarter: 2024Q2

REPORT INFORMATION
  Report Type: Spontaneous
  Country: FR (occurrence: FR)
  Receive Date: 20240423
  Receipt Date: 20240620
  Transmission Date: 20240716
  Serious: Yes (Other)
  Sender: FDA-Public Use
  Company Number: FR-ORGANON-O2308FRA001297

PATIENT
  Sex: Female
  Weight: 49.5 kg

DRUGS (3)
  1. SINEMET [Suspect]
     Active Substance: CARBIDOPA\LEVODOPA
     Indication: Parkinson^s disease
     Dosage: 1/2 TABLET 6 TIMES A DAY
     Route: 048
     Dates: start: 202104
  2. SINEMET [Suspect]
     Active Substance: CARBIDOPA\LEVODOPA
     Dosage: 1/2 TABLET 4 TIMES A DAY
     Route: 048
     Dates: start: 202201
  3. ENTACAPONE [Suspect]
     Active Substance: ENTACAPONE
     Dosage: UNK
     Route: 065

REACTIONS (34)
  - Loss of consciousness [Unknown]
  - Brain injury [Unknown]
  - Mobility decreased [Not Recovered/Not Resolved]
  - Discomfort [Not Recovered/Not Resolved]
  - Ear, nose and throat disorder [Not Recovered/Not Resolved]
  - Urine abnormality [Not Recovered/Not Resolved]
  - Feeling abnormal [Not Recovered/Not Resolved]
  - Gastrointestinal pain [Not Recovered/Not Resolved]
  - Malaise [Not Recovered/Not Resolved]
  - General physical health deterioration [Unknown]
  - Sleep disorder [Not Recovered/Not Resolved]
  - Burning sensation [Unknown]
  - Dyspepsia [Unknown]
  - Fatigue [Unknown]
  - Abdominal pain upper [Unknown]
  - Joint swelling [Unknown]
  - Pain [Unknown]
  - Gastrointestinal disorder [Unknown]
  - Speech disorder [Unknown]
  - Quality of life decreased [Unknown]
  - Neck pain [Unknown]
  - Headache [Unknown]
  - Pain in extremity [Unknown]
  - Hot flush [Unknown]
  - Sleep attacks [Unknown]
  - Renal pain [Unknown]
  - Motor dysfunction [Unknown]
  - Head discomfort [Unknown]
  - Sweat discolouration [Unknown]
  - Intentional product misuse [Unknown]
  - Intentional product use issue [Unknown]
  - Product prescribing issue [Unknown]
  - Wrong technique in product usage process [Unknown]
  - Pain [Unknown]
